FAERS Safety Report 6353216-1 (Version None)
Quarter: 2009Q3

REPORT INFORMATION
  Report Type: 
  Country: None (occurrence: None)
  Receive Date: 20090912
  Receipt Date: 20090622
  Transmission Date: 20100115
  Serious: No
  Sender: FDA-Public Use
  Company Number: US-ABBOTT-08P-163-0457153-00

PATIENT
  Age: 56 Year
  Sex: Female

DRUGS (8)
  1. HUMIRA [Suspect]
     Indication: PSORIASIS
     Route: 050
     Dates: start: 20080509
  2. ALPRAZOLAM [Concomitant]
     Indication: ESSENTIAL TREMOR
     Dosage: 2-3MG (TOTAL DAILY DOSE) 2-3MG (UNIT DOSE)
     Route: 048
  3. NABUMETONE [Concomitant]
     Indication: EXOSTOSIS
     Route: 048
  4. NABUMETONE [Concomitant]
  5. CORTISONE [Concomitant]
     Indication: EXOSTOSIS
     Dosage: SHOT (ROUTE)
  6. ATORVASTATIN CALCIUM [Concomitant]
     Indication: BLOOD CHOLESTEROL INCREASED
     Route: 048
  7. ESCITALOPRAM OXALATE [Concomitant]
     Indication: ANXIETY
     Route: 048
  8. KLIOGEST [Concomitant]
     Indication: HORMONE REPLACEMENT THERAPY
     Dosage: 50/140 CHANGE TWICE A WEEK (UNIT DOSE)
     Route: 062

REACTIONS (4)
  - INCORRECT DOSE ADMINISTERED [None]
  - INJECTION SITE HAEMATOMA [None]
  - INJECTION SITE HAEMORRHAGE [None]
  - WRONG TECHNIQUE IN DRUG USAGE PROCESS [None]
